FAERS Safety Report 21420913 (Version 2)
Quarter: 2023Q2

REPORT INFORMATION
  Report Type: Report from Study
  Country: US (occurrence: US)
  Receive Date: 20221007
  Receipt Date: 20230602
  Transmission Date: 20230721
  Serious: Yes (Death)
  Sender: FDA-Public Use
  Company Number: US-ARGENX-2022-ARGX-US001553

PATIENT
  Sex: Female
  Weight: 57 kg

DRUGS (2)
  1. VYVGART [Suspect]
     Active Substance: EFGARTIGIMOD ALFA-FCAB
     Indication: Myasthenia gravis
     Dosage: UNK
     Route: 042
     Dates: start: 20220601
  2. VYVGART [Suspect]
     Active Substance: EFGARTIGIMOD ALFA-FCAB
     Dosage: UNK
     Dates: start: 20220726

REACTIONS (5)
  - Myasthenia gravis crisis [Fatal]
  - Upper respiratory tract infection [Unknown]
  - Drug effect less than expected [Unknown]
  - Genital infection [Unknown]
  - Diarrhoea [Unknown]
